FAERS Safety Report 5395777-5 (Version None)
Quarter: 2007Q3

REPORT INFORMATION
  Report Type: 
  Country: None (occurrence: None)
  Receive Date: 20070724
  Receipt Date: 20070712
  Transmission Date: 20080115
  Serious: Yes (Hospitalization)
  Sender: FDA-Public Use
  Company Number: DE-PFIZER INC-2007054756

PATIENT
  Sex: Female
  Weight: 72 kg

DRUGS (2)
  1. LYRICA [Suspect]
     Indication: POLYNEUROPATHY
     Route: 048
     Dates: start: 20070101, end: 20070522
  2. MARCUMAR [Concomitant]

REACTIONS (8)
  - DELUSION [None]
  - DIPLOPIA [None]
  - DRUG TOXICITY [None]
  - DRUG WITHDRAWAL SYNDROME [None]
  - HALLUCINATION [None]
  - NAUSEA [None]
  - NIGHTMARE [None]
  - PSYCHOTIC DISORDER [None]
